FAERS Safety Report 12867383 (Version 1)
Quarter: 2016Q4

REPORT INFORMATION
  Report Type: Spontaneous
  Country: AT (occurrence: AT)
  Receive Date: 20161020
  Receipt Date: 20161020
  Transmission Date: 20170207
  Serious: Yes (Hospitalization, Other)
  Sender: FDA-Public Use
  Company Number: AT-MYLANLABS-2016M1044373

PATIENT

DRUGS (1)
  1. ESCITALOPRAM [Suspect]
     Active Substance: ESCITALOPRAM OXALATE
     Indication: PRODUCT USED FOR UNKNOWN INDICATION
     Dosage: 10 MG, UNK
     Route: 065
     Dates: start: 20160610, end: 20160724

REACTIONS (8)
  - Paranoia [Unknown]
  - Dysphoria [Unknown]
  - Mania [Recovered/Resolved]
  - Insomnia [Unknown]
  - Cognitive disorder [Unknown]
  - Social avoidant behaviour [Unknown]
  - Restlessness [Unknown]
  - Depression [Unknown]

NARRATIVE: CASE EVENT DATE: 20160715
